FAERS Safety Report 13554344 (Version 3)
Quarter: 2017Q3

REPORT INFORMATION
  Report Type: Spontaneous
  Country: FR (occurrence: FR)
  Receive Date: 20170517
  Receipt Date: 20170801
  Transmission Date: 20171127
  Serious: Yes (Death, Life-Threatening, Hospitalization, Other)
  Sender: FDA-Public Use
  Company Number: FR-PFIZER INC-2017214378

PATIENT
  Age: 64 Year
  Sex: Female
  Weight: 48 kg

DRUGS (6)
  1. ARACYTINE [Suspect]
     Active Substance: CYTARABINE
     Dosage: 3000 MG/M2, 2X/DAY ON D1, D3, AND D5
     Dates: start: 20160912
  2. ARACYTINE [Suspect]
     Active Substance: CYTARABINE
     Dosage: 3000 MG/M2, 2X/DAY ON D1, D3, AND D5
     Dates: start: 20161108
  3. DAUNORUBICIN [Suspect]
     Active Substance: DAUNORUBICIN
     Indication: ACUTE MYELOID LEUKAEMIA
     Dosage: 90 MG/M2, DAILY
     Dates: start: 20160531
  4. ARACYTINE [Suspect]
     Active Substance: CYTARABINE
     Dosage: 3000 MG/M2, 2X/DAY ON D1, D3, AND D5
     Dates: start: 20160804
  5. ARACYTINE [Suspect]
     Active Substance: CYTARABINE
     Indication: ACUTE MYELOID LEUKAEMIA
     Dosage: 200 MG/M2, DAILY
     Dates: start: 20160531
  6. IDARUBICIN HCL [Suspect]
     Active Substance: IDARUBICIN HYDROCHLORIDE
     Indication: ACUTE MYELOID LEUKAEMIA
     Dosage: 12 MG/M2, SINGLE AT D1
     Dates: start: 20160804

REACTIONS (8)
  - Nervous system disorder [Unknown]
  - Histiocytosis haematophagic [Recovered/Resolved]
  - General physical condition abnormal [Unknown]
  - Staphylococcal infection [Unknown]
  - Mucosal inflammation [Unknown]
  - Malnutrition [Unknown]
  - Neoplasm progression [Fatal]
  - Febrile bone marrow aplasia [Unknown]

NARRATIVE: CASE EVENT DATE: 2016
